FAERS Safety Report 21874125 (Version 2)
Quarter: 2023Q1

REPORT INFORMATION
  Report Type: Spontaneous
  Country: CA (occurrence: CA)
  Receive Date: 20230117
  Receipt Date: 20230123
  Transmission Date: 20230417
  Serious: Yes (Hospitalization, Other)
  Sender: FDA-Public Use
  Company Number: CA-BAUSCH-BL-2023-000824

PATIENT
  Age: 58 Year
  Sex: Female

DRUGS (2)
  1. METRONIDAZOLE [Suspect]
     Active Substance: METRONIDAZOLE
     Indication: Prophylaxis
     Route: 048
  2. METRONIDAZOLE [Suspect]
     Active Substance: METRONIDAZOLE
     Indication: Pouchitis

REACTIONS (9)
  - Blindness [Unknown]
  - Eye oedema [Unknown]
  - Neurotoxicity [Unknown]
  - Sensory loss [Unknown]
  - Visual field defect [Unknown]
  - Cerebellar ataxia [Unknown]
  - Gait disturbance [Unknown]
  - Peripheral sensory neuropathy [Unknown]
  - Optic neuropathy [Unknown]
